FAERS Safety Report 7118406-9 (Version None)
Quarter: 2010Q4

REPORT INFORMATION
  Report Type: 
  Country: None (occurrence: None)
  Receive Date: 20101123
  Receipt Date: 20101109
  Transmission Date: 20110411
  Serious: Yes (Hospitalization, Other)
  Sender: FDA-Public Use
  Company Number: PHHY2010MX76338

PATIENT
  Age: 94 Year
  Sex: Female

DRUGS (1)
  1. EXFORGE [Suspect]
     Indication: HYPERTENSION
     Dosage: 160/5 MG, DAILY, ONE TABLET
     Dates: start: 20100901

REACTIONS (2)
  - FALL [None]
  - SKELETAL INJURY [None]
